FAERS Safety Report 4521116-5 (Version None)
Quarter: 2004Q4

REPORT INFORMATION
  Report Type: 
  Country: None (occurrence: None)
  Receive Date: 20041208
  Receipt Date: 20041025
  Transmission Date: 20050328
  Serious: Yes (Other)
  Sender: FDA-Public Use
  Company Number: FR-ROCHE-384323

PATIENT
  Age: 60 Year
  Sex: Male

DRUGS (1)
  1. ROACCUTANE [Suspect]
     Dosage: DOSAGE OF 50 MG PER MONTH.
     Route: 048
     Dates: start: 19960615, end: 20040615

REACTIONS (3)
  - BRONCHOSPASM [None]
  - CATARACT [None]
  - EMPHYSEMA [None]
